FAERS Safety Report 6737053-1 (Version None)
Quarter: 2010Q2

REPORT INFORMATION
  Report Type: 
  Country: None (occurrence: None)
  Receive Date: 20100524
  Receipt Date: 20100514
  Transmission Date: 20101027
  Serious: Yes (Hospitalization)
  Sender: FDA-Public Use
  Company Number: US-BIOGENIDEC-2010BI016048

PATIENT
  Age: 41 Year
  Sex: Female

DRUGS (3)
  1. AVONEX [Suspect]
     Indication: MULTIPLE SCLEROSIS
     Route: 030
     Dates: start: 20070817, end: 20090410
  2. AVONEX [Suspect]
     Route: 030
     Dates: start: 20090918
  3. STEROIDS NOS [Concomitant]

REACTIONS (12)
  - CONCUSSION [None]
  - DECREASED IMMUNE RESPONSIVENESS [None]
  - DENTAL CARIES [None]
  - FALL [None]
  - FATIGUE [None]
  - H1N1 INFLUENZA [None]
  - HEAD INJURY [None]
  - MIGRAINE [None]
  - MULTIPLE SCLEROSIS RELAPSE [None]
  - MUSCULAR WEAKNESS [None]
  - PNEUMONIA [None]
  - STRESS [None]
